FAERS Safety Report 9508927 (Version 1)
Quarter: 2013Q3

REPORT INFORMATION
  Report Type: Spontaneous
  Country: US (occurrence: US)
  Receive Date: 20130909
  Receipt Date: 20130909
  Transmission Date: 20140515
  Serious: No
  Sender: FDA-Public Use
  Company Number: US-BRISTOL-MYERS SQUIBB COMPANY-19088608

PATIENT
  Age: 59 Year
  Sex: Female
  Weight: 93.87 kg

DRUGS (6)
  1. ABILIFY [Suspect]
     Dates: start: 2013
  2. CELEXA [Concomitant]
  3. XANAX [Concomitant]
  4. AMBIEN [Concomitant]
  5. THYROID [Concomitant]
  6. HCTZ [Concomitant]

REACTIONS (4)
  - Feeling abnormal [Unknown]
  - Asthenia [Unknown]
  - Panic attack [Unknown]
  - Anxiety [Unknown]
